FAERS Safety Report 12903888 (Version 1)
Quarter: 2016Q4

REPORT INFORMATION
  Report Type: Spontaneous
  Country: US (occurrence: US)
  Receive Date: 20161102
  Receipt Date: 20161102
  Transmission Date: 20170207
  Serious: Yes (Other)
  Sender: FDA-Public Use
  Company Number: US-BAYER-2016-209841

PATIENT
  Age: 30 Year
  Sex: Female
  Weight: 65.76 kg

DRUGS (14)
  1. CENTRUM SILVER [Concomitant]
     Active Substance: MINERALS\VITAMINS
  2. CALCIUM WITH VITAMIN D [Concomitant]
     Active Substance: CALCIUM\VITAMIN D
  3. AFRIN ORIGINAL [Suspect]
     Active Substance: OXYMETAZOLINE HYDROCHLORIDE
     Indication: HYPERSENSITIVITY
     Dosage: UNK UNK, QD
     Route: 045
     Dates: start: 1968, end: 1978
  4. AFRIN ORIGINAL [Suspect]
     Active Substance: OXYMETAZOLINE HYDROCHLORIDE
     Indication: NASOPHARYNGITIS
     Dosage: 10 TIMES A DAY
     Route: 045
  5. CITALOPRAM [Concomitant]
     Active Substance: CITALOPRAM HYDROBROMIDE
  6. BAYER LOW DOSE [Concomitant]
     Active Substance: ASPIRIN
  7. BIOTIN [Concomitant]
     Active Substance: BIOTIN
  8. NEXIUM [Concomitant]
     Active Substance: ESOMEPRAZOLE MAGNESIUM
  9. OMEGA 3 [Concomitant]
     Active Substance: OMEGA-3 FATTY ACIDS
  10. EVISTA [RALOXIFENE HYDROCHLORIDE] [Concomitant]
  11. POTASSIUM [POTASSIUM] [Concomitant]
  12. AMLODIPINE [Concomitant]
     Active Substance: AMLODIPINE BESYLATE
  13. CELEBREX [Concomitant]
     Active Substance: CELECOXIB
  14. AFRIN ORIGINAL [Suspect]
     Active Substance: OXYMETAZOLINE HYDROCHLORIDE
     Indication: HYPERSENSITIVITY
     Dosage: UNK UNK, QD
     Route: 045
     Dates: start: 2004

REACTIONS (5)
  - Product use issue [Unknown]
  - Product use issue [None]
  - Drug dependence [Not Recovered/Not Resolved]
  - Product use issue [Unknown]
  - Drug dependence [Recovering/Resolving]

NARRATIVE: CASE EVENT DATE: 1968
